FAERS Safety Report 7241787-2 (Version None)
Quarter: 2011Q1

REPORT INFORMATION
  Report Type: 
  Country: None (occurrence: None)
  Receive Date: 20110124
  Receipt Date: 20101119
  Transmission Date: 20110831
  Serious: Yes (Hospitalization)
  Sender: FDA-Public Use
  Company Number: US-BAYER-201030646NA

PATIENT
  Sex: Female
  Weight: 52 kg

DRUGS (16)
  1. BENADRYL [Concomitant]
  2. MICROGESTIN 1.5/30 [Concomitant]
     Dates: start: 20081001
  3. DILAUDID [Concomitant]
  4. YASMIN [Suspect]
     Indication: PRODUCT USED FOR UNKNOWN INDICATION
     Dosage: UNK
     Route: 048
  5. CONTRACEPTIVES NOS [Concomitant]
  6. LOESTRIN 1.5/30 [Concomitant]
     Dates: start: 20080601, end: 20090615
  7. ETHINYL ESTRADIOL AND NORETHINDRONE [Concomitant]
     Indication: CONTRACEPTION
     Dates: start: 20080601
  8. AMITRIPTYLINE HYDROCHLORIDE [Concomitant]
     Dates: start: 20070323
  9. LO/OVRAL [Concomitant]
  10. ZOFRAN [Concomitant]
  11. MACROBID [Concomitant]
  12. OCELLA [Suspect]
     Indication: PRODUCT USED FOR UNKNOWN INDICATION
     Dosage: UNK
     Route: 048
  13. LORTAB [Concomitant]
  14. PHENERGAN [Concomitant]
  15. YAZ [Suspect]
     Indication: CONTRACEPTION
     Dosage: UNK
     Route: 048
     Dates: end: 20080619
  16. LEVORA 0.15/30-21 [Concomitant]
     Dates: start: 20070323

REACTIONS (4)
  - ABDOMINAL PAIN UPPER [None]
  - VAGINAL HAEMORRHAGE [None]
  - BILIARY COLIC [None]
  - BILIARY CYST [None]
